FAERS Safety Report 5381919-4 (Version None)
Quarter: 2007Q3

REPORT INFORMATION
  Report Type: 
  Country: None (occurrence: None)
  Receive Date: 20070709
  Receipt Date: 20070702
  Transmission Date: 20080115
  Serious: Yes (Other)
  Sender: FDA-Public Use
  Company Number: DE-ABBOTT-07P-062-0372164-00

PATIENT
  Age: 64 Year
  Sex: Male

DRUGS (3)
  1. VALPROIC ACID [Suspect]
     Indication: PETIT MAL EPILEPSY
     Route: 048
  2. SULFONAMID ANTIBIOTIC [Interacting]
     Indication: URINARY TRACT INFECTION
     Route: 048
  3. VALSARTAN [Concomitant]
     Indication: HYPERTENSION
     Route: 048
     Dates: start: 20060101

REACTIONS (2)
  - CYTOLYTIC HEPATITIS [None]
  - DRUG INTERACTION [None]
